FAERS Safety Report 23914713 (Version 1)
Quarter: 2024Q2

REPORT INFORMATION
  Report Type: Spontaneous
  Country: CA (occurrence: None)
  Receive Date: 20240527
  Receipt Date: 20240527
  Transmission Date: 20240716
  Serious: Yes (Other)
  Sender: FDA-Public Use
  Company Number: None

PATIENT
  Age: 54 Year
  Sex: Female

DRUGS (1)
  1. KOSAS REVEALER SKIN-IMPROVING FOUNDATION BROAD SPECTRUM SPF-25 - DEEP [Suspect]
     Active Substance: ZINC OXIDE
     Indication: Therapeutic skin care topical
     Route: 061

REACTIONS (10)
  - Application site pruritus [None]
  - Skin tightness [None]
  - Application site pain [None]
  - Erythema [None]
  - Feeling hot [None]
  - Lip pain [None]
  - Urticaria [None]
  - Application site vesicles [None]
  - Application site pustules [None]
  - Product formulation issue [None]

NARRATIVE: CASE EVENT DATE: 20240525
